FAERS Safety Report 9565526 (Version 3)
Quarter: 2013Q4

REPORT INFORMATION
  Report Type: Report from Study
  Country: US (occurrence: US)
  Receive Date: 20130930
  Receipt Date: 20131022
  Transmission Date: 20140711
  Serious: Yes (Death, Hospitalization)
  Sender: FDA-Public Use
  Company Number: US-ACTELION-A-US2013-87455

PATIENT
  Age: 87 Year
  Sex: Female

DRUGS (7)
  1. TRACLEER [Suspect]
     Indication: PULMONARY ARTERIAL HYPERTENSION
     Dosage: 125 MG, BID
     Route: 048
     Dates: start: 2010
  2. POTASSIUM [Concomitant]
     Dosage: 1500 MG, UNK
     Dates: start: 2010
  3. COUMADIN [Concomitant]
     Dosage: 7.5 MG QD, 5 MG QD T/R
     Dates: start: 2010
  4. LASIX [Concomitant]
     Dosage: 480 MG, UNK
     Dates: start: 2010
  5. LOPRESSOR [Concomitant]
     Dosage: 50 MG, BID
     Dates: start: 2010
  6. LISINOPRIL [Concomitant]
     Dosage: 40 MG, QD
     Dates: start: 2010
  7. OXYGEN [Concomitant]

REACTIONS (8)
  - Death [Fatal]
  - Rib fracture [Recovered/Resolved]
  - Head injury [Not Recovered/Not Resolved]
  - Syncope [Recovered/Resolved]
  - Gout [Unknown]
  - Nasopharyngitis [Unknown]
  - Dyspnoea [Recovering/Resolving]
  - Oedema peripheral [Unknown]
